FAERS Safety Report 15494741 (Version 3)
Quarter: 2022Q3

REPORT INFORMATION
  Report Type: Spontaneous
  Country: DE (occurrence: DE)
  Receive Date: 20181012
  Receipt Date: 20220906
  Transmission Date: 20221026
  Serious: Yes (Death, Hospitalization, Other)
  Sender: FDA-Public Use
  Company Number: PHHY2018DE123302

PATIENT
  Age: 77 Year
  Sex: Female
  Weight: 83 kg

DRUGS (7)
  1. NILOTINIB [Suspect]
     Active Substance: NILOTINIB
     Indication: Chronic myeloid leukaemia
     Dosage: 300 MG (TOTAL DAILY DOSE 600 MG ON 7 DAYS PER WEEK)
     Route: 065
     Dates: start: 20140121, end: 20140125
  2. NILOTINIB [Suspect]
     Active Substance: NILOTINIB
     Dosage: 300 MG (TOTAL DAILY 1500MG, ON 7 DAYS PER WEEK)
     Route: 065
     Dates: start: 20140126, end: 20140130
  3. NILOTINIB [Suspect]
     Active Substance: NILOTINIB
     Dosage: 200 MG (TOTAL DAILY 800MG, ON 7 DAYS PER WEEK)
     Route: 065
     Dates: start: 20140130, end: 20140312
  4. NILOTINIB [Suspect]
     Active Substance: NILOTINIB
     Dosage: 400 MG (800MG, 7 DAYS PER WEEK)
     Route: 065
     Dates: start: 20140305, end: 20140311
  5. DASATINIB [Suspect]
     Active Substance: DASATINIB
     Indication: Chronic myeloid leukaemia
     Dosage: 140 MG (140 MG, UNK 7 DAYS/WEEK 200 MG)
     Route: 065
     Dates: start: 20140121
  6. DASATINIB [Suspect]
     Active Substance: DASATINIB
     Dosage: 140 MG, UNK 7 DAYS/WEEK 200MG
     Route: 065
     Dates: start: 20140312, end: 20140327
  7. DASATINIB [Suspect]
     Active Substance: DASATINIB
     Dosage: 140 MG (140 MG, UNK 7 DAYS/WEEK 200 MG)
     Route: 065
     Dates: start: 20140312, end: 20140408

REACTIONS (10)
  - Pneumonia [Fatal]
  - Pancytopenia [Fatal]
  - Weight decreased [Fatal]
  - Sepsis [Recovered/Resolved]
  - Acute myeloid leukaemia [Unknown]
  - Leukopenia [Recovered/Resolved]
  - Thrombocytopenia [Not Recovered/Not Resolved]
  - Anaemia [Recovering/Resolving]
  - Disease progression [Unknown]
  - Drug ineffective [Unknown]

NARRATIVE: CASE EVENT DATE: 20140203
